FAERS Safety Report 7357288-7 (Version None)
Quarter: 2011Q1

REPORT INFORMATION
  Report Type: 
  Country: None (occurrence: None)
  Receive Date: 20110311
  Receipt Date: 20110311
  Transmission Date: 20110831
  Serious: Yes (Death, Life-Threatening, Hospitalization, Disabling, Congenital Anomaly, Other)
  Sender: FDA-Public Use
  Company Number: None

PATIENT
  Age: 23 Year
  Sex: Female
  Weight: 77.5651 kg

DRUGS (1)
  1. EFFEXOR [Suspect]
     Indication: MENOPAUSAL SYMPTOMS
     Dosage: 75MG ONCE DAILY PO
     Route: 048
     Dates: start: 20110207, end: 20110305

REACTIONS (2)
  - SUICIDE ATTEMPT [None]
  - OFF LABEL USE [None]
